FAERS Safety Report 23890919 (Version 4)
Quarter: 2025Q4

REPORT INFORMATION
  Report Type: Report from Study
  Country: IN (occurrence: IN)
  Receive Date: 20240523
  Receipt Date: 20251229
  Transmission Date: 20260118
  Serious: Yes (Other)
  Sender: INCYTE
  Company Number: IN-002147023-NVSC2023IN097169

PATIENT
  Age: 76 Year

DRUGS (5)
  1. RUXOLITINIB [Suspect]
     Active Substance: RUXOLITINIB
     Indication: Primary myelofibrosis
     Dosage: 5 MG, QD
     Route: 061
  2. RUXOLITINIB [Suspect]
     Active Substance: RUXOLITINIB
     Indication: Janus kinase 2 mutation
     Dosage: 10 MG, BID
     Route: 061
  3. RUXOLITINIB [Suspect]
     Active Substance: RUXOLITINIB
     Indication: Myeloproliferative neoplasm
     Dosage: 5 MG, BID
     Route: 061
  4. RUXOLITINIB [Suspect]
     Active Substance: RUXOLITINIB
     Dosage: 5 MG, BID
     Route: 065
  5. RUXOLITINIB [Suspect]
     Active Substance: RUXOLITINIB
     Dosage: 5 MG, BID
     Route: 061

REACTIONS (26)
  - Diabetes mellitus [Unknown]
  - Hypothyroidism [Unknown]
  - Blood creatinine increased [Unknown]
  - Anaemia [Not Recovered/Not Resolved]
  - Proteinuria [Unknown]
  - Oedema peripheral [Unknown]
  - Albumin urine present [Unknown]
  - Lymphocyte percentage decreased [Unknown]
  - Neutrophil count increased [Unknown]
  - Monocyte count increased [Unknown]
  - Blood sodium decreased [Unknown]
  - Splenomegaly [Unknown]
  - Memory impairment [Unknown]
  - Hypertension [Unknown]
  - Off label use [Unknown]
  - White blood cell count abnormal [Unknown]
  - Blood urea abnormal [Unknown]
  - Blood potassium abnormal [Unknown]
  - Blood alkaline phosphatase abnormal [Unknown]
  - Blood uric acid abnormal [Unknown]
  - Blood albumin abnormal [Unknown]
  - Blood calcium abnormal [Unknown]
  - Blood phosphorus abnormal [Unknown]
  - Blood triglycerides abnormal [Unknown]
  - High density lipoprotein abnormal [Unknown]
  - Very low density lipoprotein abnormal [Unknown]
